FAERS Safety Report 12916074 (Version 1)
Quarter: 2016Q4

REPORT INFORMATION
  Report Type: Other
  Country: CA (occurrence: CA)
  Receive Date: 20161104
  Receipt Date: 20161104
  Transmission Date: 20170207
  Serious: Yes (Life-Threatening, Hospitalization)
  Sender: FDA-Public Use
  Company Number: CA-APOTEX-2016AP013690

PATIENT
  Age: 37 Year
  Sex: Female

DRUGS (11)
  1. APO-ACETAMINOPHEN [Suspect]
     Active Substance: ACETAMINOPHEN
     Indication: PRODUCT USED FOR UNKNOWN INDICATION
     Dosage: 4 DF, QD
     Route: 051
  2. DICLOFENAC [Suspect]
     Active Substance: DICLOFENAC
     Indication: PRODUCT USED FOR UNKNOWN INDICATION
     Dosage: 50 MG, TID
     Route: 065
  3. APO-HYDROMORPHONE [Suspect]
     Active Substance: HYDROMORPHONE
     Indication: PRODUCT USED FOR UNKNOWN INDICATION
     Dosage: 2 MG, QD
     Route: 065
  4. APO-KETOROLAC INJECTABLE [Suspect]
     Active Substance: KETOROLAC\KETOROLAC TROMETHAMINE
     Indication: PRODUCT USED FOR UNKNOWN INDICATION
     Dosage: 30 MG, UNK
     Route: 042
  5. MORPHINE [Suspect]
     Active Substance: MORPHINE
     Dosage: 2 MG, UNK
     Route: 058
  6. MORPHINE [Suspect]
     Active Substance: MORPHINE
     Dosage: 1 MG, UNK
     Route: 042
  7. APO-FENTANYL MATRIX [Suspect]
     Active Substance: FENTANYL
     Indication: PRODUCT USED FOR UNKNOWN INDICATION
     Dosage: 0.01 MG, UNK
     Route: 037
  8. MORPHINE [Suspect]
     Active Substance: MORPHINE
     Dosage: 1 MG, UNK
     Route: 037
  9. BUPIVACAINE. [Suspect]
     Active Substance: BUPIVACAINE
     Indication: PRODUCT USED FOR UNKNOWN INDICATION
     Dosage: 0.75 %, UNK
     Route: 008
  10. MORPHINE [Suspect]
     Active Substance: MORPHINE
     Indication: PRODUCT USED FOR UNKNOWN INDICATION
     Dosage: 2 MG, UNK
     Route: 065
  11. NALOXONE [Suspect]
     Active Substance: NALOXONE
     Indication: PRODUCT USED FOR UNKNOWN INDICATION
     Dosage: 0.28 MG, UNK
     Route: 065

REACTIONS (6)
  - Blood pressure increased [Unknown]
  - Unresponsive to stimuli [Unknown]
  - Drug interaction [Unknown]
  - Respiratory depression [Unknown]
  - Respiratory rate decreased [Unknown]
  - Maternal exposure during pregnancy [Unknown]
